FAERS Safety Report 6061505-3 (Version None)
Quarter: 2009Q1

REPORT INFORMATION
  Report Type: 
  Country: None (occurrence: None)
  Receive Date: 20090130
  Receipt Date: 20090130
  Transmission Date: 20090719
  Serious: Yes (Disabling, Other)
  Sender: FDA-Public Use
  Company Number: None

PATIENT
  Age: 30 Year
  Sex: Male
  Weight: 90.7194 kg

DRUGS (1)
  1. PROAIR HFA [Suspect]
     Indication: ASTHMA
     Dosage: 2 PUFFS AS NEEDED ALL DAY LONG PO
     Route: 048
     Dates: start: 20081015, end: 20090129

REACTIONS (6)
  - ASTHMA [None]
  - CONDITION AGGRAVATED [None]
  - DRUG EFFECT DECREASED [None]
  - EXERCISE TOLERANCE DECREASED [None]
  - MIDDLE INSOMNIA [None]
  - PRODUCT QUALITY ISSUE [None]
